FAERS Safety Report 5385500-2 (Version None)
Quarter: 2007Q3

REPORT INFORMATION
  Report Type: 
  Country: None (occurrence: None)
  Receive Date: 20070709
  Receipt Date: 20070629
  Transmission Date: 20080115
  Serious: Yes (Other)
  Sender: FDA-Public Use
  Company Number: 062-C5013-07061691

PATIENT
  Sex: Female

DRUGS (1)
  1. LENALIDOMIDE                    (CAPSULES) [Suspect]
     Indication: MYELODYSPLASTIC SYNDROME
     Dosage: ORAL
     Route: 048

REACTIONS (4)
  - ASCITES [None]
  - PERICARDIAL EFFUSION [None]
  - PLEURAL EFFUSION [None]
  - VOMITING [None]
